FAERS Safety Report 12727650 (Version 1)
Quarter: 2016Q3

REPORT INFORMATION
  Report Type: Spontaneous
  Country: CN (occurrence: CN)
  Receive Date: 20160909
  Receipt Date: 20160909
  Transmission Date: 20161109
  Serious: Yes (Hospitalization)
  Sender: FDA-Public Use
  Company Number: PHHY2016CN124104

PATIENT
  Age: 82 Year
  Sex: Male

DRUGS (1)
  1. OXCARBAZEPINE. [Suspect]
     Active Substance: OXCARBAZEPINE
     Indication: EPILEPSY
     Dosage: 0.15 G,EVERY TIME BID
     Route: 048
     Dates: start: 20160816

REACTIONS (4)
  - Toxicity to various agents [Unknown]
  - Hallucination [Recovering/Resolving]
  - Amnesia [Unknown]
  - Nightmare [Unknown]

NARRATIVE: CASE EVENT DATE: 20160816
